FAERS Safety Report 9587228 (Version 1)
Quarter: 2013Q4

REPORT INFORMATION
  Report Type: Spontaneous
  Country: DE (occurrence: DE)
  Receive Date: 20131003
  Receipt Date: 20131003
  Transmission Date: 20140711
  Serious: Yes (Other)
  Sender: FDA-Public Use
  Company Number: DE-GLAXOSMITHKLINE-D0079907A

PATIENT
  Age: 69 Year
  Sex: Female
  Weight: 44 kg

DRUGS (3)
  1. ARIXTRA [Suspect]
     Indication: THROMBOSIS PROPHYLAXIS
     Dosage: 2.5MG PER DAY
     Route: 058
     Dates: start: 20130308, end: 20130402
  2. MYKUNDEX [Concomitant]
  3. ANTIBIOTICS [Concomitant]
     Route: 065

REACTIONS (7)
  - Muscle haemorrhage [Unknown]
  - Haematemesis [Unknown]
  - Haemoglobin decreased [Unknown]
  - Mucosal haemorrhage [Unknown]
  - Body temperature increased [Recovered/Resolved]
  - Hepatic enzyme increased [Unknown]
  - Oesophageal candidiasis [Recovered/Resolved]
